FAERS Safety Report 4421223-1 (Version None)
Quarter: 2004Q3

REPORT INFORMATION
  Report Type: 
  Country: None (occurrence: None)
  Receive Date: 20040809
  Receipt Date: 20040804
  Transmission Date: 20050211
  Serious: Yes (Hospitalization)
  Sender: FDA-Public Use
  Company Number: PHBS2004IT10320

PATIENT
  Age: 62 Year
  Sex: Male

DRUGS (1)
  1. GLEEVEC [Suspect]
     Indication: GASTROINTESTINAL STROMAL TUMOUR
     Dosage: 400 MG/D
     Route: 048

REACTIONS (14)
  - ANAEMIA [None]
  - BURNING SENSATION MUCOSAL [None]
  - DYSGEUSIA [None]
  - HAEMOGLOBIN DECREASED [None]
  - LICHEN PLANUS [None]
  - MELAENA [None]
  - MYALGIA [None]
  - OESOPHAGITIS [None]
  - PRURITUS [None]
  - RASH [None]
  - RASH MACULO-PAPULAR [None]
  - RED BLOOD CELL COUNT DECREASED [None]
  - SALIVARY HYPERSECRETION [None]
  - WEIGHT INCREASED [None]
